FAERS Safety Report 18602261 (Version 1)
Quarter: 2020Q4

REPORT INFORMATION
  Report Type: Spontaneous
  Country: PH (occurrence: PH)
  Receive Date: 20201210
  Receipt Date: 20201210
  Transmission Date: 20210114
  Serious: Yes (Other)
  Sender: FDA-Public Use
  Company Number: PH-B.I. PHARMACEUTICALS,INC./RIDGEFIELD-2020-BI-066818

PATIENT
  Age: 55 Year
  Sex: Male

DRUGS (1)
  1. GILOTRIF [Suspect]
     Active Substance: AFATINIB
     Indication: PRODUCT USED FOR UNKNOWN INDICATION
     Dosage: RECOMMENDED DOSE: 40MG
     Dates: start: 201805

REACTIONS (7)
  - Off label use [Unknown]
  - Metastases to central nervous system [Unknown]
  - Disease progression [Unknown]
  - Rash [Unknown]
  - Vision blurred [Unknown]
  - Therapeutic product effect decreased [Unknown]
  - Dizziness [Unknown]

NARRATIVE: CASE EVENT DATE: 201805
